FAERS Safety Report 17842345 (Version 4)
Quarter: 2020Q3

REPORT INFORMATION
  Report Type: Spontaneous
  Country: US (occurrence: US)
  Receive Date: 20200529
  Receipt Date: 20200728
  Transmission Date: 20201103
  Serious: No
  Sender: FDA-Public Use
  Company Number: US-ACTELION-A-NJ2020-205370

PATIENT
  Sex: Female

DRUGS (2)
  1. OPSUMIT [Suspect]
     Active Substance: MACITENTAN
     Indication: PULMONARY ARTERIAL HYPERTENSION
     Dosage: 10 MG, QD
     Route: 048
     Dates: start: 20200509
  2. SILDENAFIL. [Suspect]
     Active Substance: SILDENAFIL
     Indication: PRODUCT USED FOR UNKNOWN INDICATION
     Route: 048

REACTIONS (10)
  - Living in residential institution [Unknown]
  - Product dose omission issue [Unknown]
  - Oedema [Unknown]
  - Thrombosis [Unknown]
  - Peripheral swelling [Unknown]
  - Dyspnoea [Unknown]
  - Fluid retention [Unknown]
  - Epistaxis [Unknown]
  - Abdominal distension [Unknown]
  - Skin discolouration [Unknown]
